FAERS Safety Report 5376191-5 (Version None)
Quarter: 2007Q3

REPORT INFORMATION
  Report Type: 
  Country: None (occurrence: None)
  Receive Date: 20070702
  Receipt Date: 20070626
  Transmission Date: 20080115
  Serious: Yes (Other)
  Sender: FDA-Public Use
  Company Number: B0434807A

PATIENT
  Age: 23 Year
  Sex: Female

DRUGS (2)
  1. PANADOL [Suspect]
     Indication: SUICIDE ATTEMPT
     Dosage: 8G SINGLE DOSE
     Route: 048
     Dates: start: 20060630, end: 20060630
  2. FLUIMUCIL [Suspect]
     Indication: CHELATION THERAPY
     Dosage: 34.1G SINGLE DOSE
     Route: 042
     Dates: start: 20060630, end: 20060630

REACTIONS (2)
  - DELIVERY [None]
  - SUICIDE ATTEMPT [None]
